FAERS Safety Report 8383579-7 (Version None)
Quarter: 2012Q1

REPORT INFORMATION
  Report Type: 
  Country: None (occurrence: None)
  Receive Date: 20120323
  Receipt Date: 20110711
  Transmission Date: 20120608
  Serious: Yes (Other)
  Sender: FDA-Public Use
  Company Number: 163-21880-11032598

PATIENT
  Age: 81 Year
  Sex: Female
  Weight: 45.4 kg

DRUGS (18)
  1. RITUXIMAB (RITUXIAB) [Concomitant]
  2. SOLIFENACIN SUCCINATE [Concomitant]
  3. DIGOXIN [Concomitant]
  4. LEVOTHYROXINE SODIUM [Concomitant]
  5. METOPROLOL TARTRATE [Concomitant]
  6. POTASSIUM CHLORIDE [Concomitant]
  7. ALENDRONATE SODIUM [Concomitant]
  8. FOLIC ACID [Concomitant]
  9. LISINOPRIL [Concomitant]
  10. MULTIVITAMINS WIHT MINERALS (MULTIVITAMINS WITH MINERALS) [Concomitant]
  11. OMEPRAZOLE [Concomitant]
  12. PSYLLIUM SEED (PSYLLIUM) [Concomitant]
  13. WARFARIN SODIUM [Concomitant]
  14. CALCIUM CITRATE/VITAMIN D3 (CALCIUM D3 ^STADA^) [Concomitant]
  15. REVLIMID [Suspect]
     Indication: MYELODYSPLASTIC SYNDROME
     Dosage: 10 MG, 2 IN 1 D, PO 5 MG, 1 IN 1 D, PO
     Route: 048
     Dates: start: 20110222, end: 20110322
  16. REVLIMID [Suspect]
     Indication: MYELODYSPLASTIC SYNDROME
     Dosage: 10 MG, 2 IN 1 D, PO 5 MG, 1 IN 1 D, PO
     Route: 048
     Dates: start: 20110404
  17. BLOOD (BLOOD AND RELATED PRODUCTS) [Concomitant]
  18. ACETAMINOPHEN [Concomitant]

REACTIONS (4)
  - PANCYTOPENIA [None]
  - DIARRHOEA [None]
  - RASH [None]
  - OEDEMA PERIPHERAL [None]
